FAERS Safety Report 9882430 (Version 2)
Quarter: 2014Q1

REPORT INFORMATION
  Report Type: Spontaneous
  Country: BR (occurrence: BR)
  Receive Date: 20140207
  Receipt Date: 20140214
  Transmission Date: 20141002
  Serious: Yes (Hospitalization)
  Sender: FDA-Public Use
  Company Number: BR-ASTRAZENECA-2014SE07618

PATIENT
  Age: 917 Month
  Sex: Male

DRUGS (8)
  1. BRILINTA [Suspect]
     Indication: DEVICE OCCLUSION
     Route: 048
     Dates: start: 201303, end: 201311
  2. BRILINTA [Suspect]
     Indication: DEVICE OCCLUSION
     Route: 048
     Dates: start: 201311
  3. METFORMIN HYDROCHLORIDE [Suspect]
     Indication: DIABETES MELLITUS
     Dosage: BID
     Route: 065
     Dates: start: 2004
  4. TREZOR [Suspect]
     Indication: CARDIAC DISORDER
     Dosage: DAILY
     Route: 048
     Dates: start: 201303
  5. JANUVIA [Concomitant]
     Indication: DIABETES MELLITUS
     Dosage: DAILY
     Dates: start: 2004
  6. GLIMEPIRIDE [Concomitant]
     Indication: DIABETES MELLITUS
     Dosage: DAILY
     Dates: start: 2004
  7. LOSARTAN POTASSIUM [Concomitant]
     Indication: HYPERTENSION
     Dosage: BID
     Dates: start: 201303
  8. CONCOR [Concomitant]
     Indication: CARDIAC DISORDER
     Dates: start: 201303

REACTIONS (1)
  - Cardiac disorder [Recovered/Resolved]
